FAERS Safety Report 23123922 (Version 2)
Quarter: 2023Q4

REPORT INFORMATION
  Report Type: Spontaneous
  Country: DE (occurrence: None)
  Receive Date: 20231030
  Receipt Date: 20231114
  Transmission Date: 20240109
  Serious: Yes (Hospitalization, Other)
  Sender: FDA-Public Use
  Company Number: 2023A240892

PATIENT
  Age: 81 Year
  Sex: Male

DRUGS (2)
  1. LYNPARZA [Suspect]
     Active Substance: OLAPARIB
     Indication: Prostate cancer
     Route: 048
  2. ELIQUIS [Suspect]
     Active Substance: APIXABAN
     Indication: Atrial fibrillation
     Dosage: DOSE : 5 MG; FREQ : TWICE DAILY

REACTIONS (4)
  - General physical health deterioration [Unknown]
  - COVID-19 [Unknown]
  - Pancytopenia [Recovered/Resolved]
  - Platelet count decreased [Unknown]
